FAERS Safety Report 6475562-3 (Version None)
Quarter: 2009Q4

REPORT INFORMATION
  Report Type: 
  Country: None (occurrence: None)
  Receive Date: 20091204
  Receipt Date: 20091124
  Transmission Date: 20100525
  Serious: Yes (Other)
  Sender: FDA-Public Use
  Company Number: US-PFIZER INC-2009286239

PATIENT
  Sex: Male
  Weight: 88.435 kg

DRUGS (5)
  1. CHANTIX [Suspect]
     Indication: SMOKING CESSATION THERAPY
     Dosage: 1 MG, 2X/DAY
     Route: 048
     Dates: start: 20090101, end: 20091016
  2. CHANTIX [Suspect]
     Dosage: 0.5 MG, 1X/DAY
     Route: 048
     Dates: start: 20090923
  3. VYTORIN [Concomitant]
     Dosage: 40/10 AT BEDTIME
  4. OMEPRAZOLE [Concomitant]
     Dosage: 40 MG DAILY
  5. METOPROLOL TARTRATE [Concomitant]
     Indication: BLOOD PRESSURE ABNORMAL
     Dosage: 50 MG, 2X/DAY

REACTIONS (4)
  - ABNORMAL DREAMS [None]
  - ANGER [None]
  - IRRITABILITY [None]
  - SELF-INJURIOUS IDEATION [None]
